FAERS Safety Report 8484898-6 (Version None)
Quarter: 2012Q3

REPORT INFORMATION
  Report Type: 
  Country: None (occurrence: None)
  Receive Date: 20120703
  Receipt Date: 20120625
  Transmission Date: 20120928
  Serious: Yes (Other)
  Sender: FDA-Public Use
  Company Number: US-ASTELLAS-2012US000788

PATIENT
  Sex: Male

DRUGS (4)
  1. TARCEVA [Suspect]
     Dosage: 150 MG, UNKNOWN/D
     Route: 048
  2. TARCEVA [Suspect]
     Indication: PANCREATIC CARCINOMA METASTATIC
     Dosage: 100 MG, UNKNOWN/D
     Route: 048
  3. XELODA [Suspect]
     Indication: PANCREATIC CARCINOMA METASTATIC
     Dosage: UNK
     Route: 065
  4. GEMZAR [Concomitant]
     Indication: PANCREATIC CARCINOMA
     Dosage: UNK
     Route: 065

REACTIONS (4)
  - INCORRECT DOSE ADMINISTERED [None]
  - DEAFNESS [None]
  - NEOPLASM MALIGNANT [None]
  - RASH [None]
